FAERS Safety Report 7973072 (Version 2)
Quarter: 2013Q4

REPORT INFORMATION
  Report Type: Spontaneous
  Country: US (occurrence: US)
  Receive Date: 20110603
  Receipt Date: 20131223
  Transmission Date: 20140711
  Serious: Yes (Hospitalization, Other)
  Sender: FDA-Public Use
  Company Number: US-BAYER-2011-047505

PATIENT
  Age: 29 Year
  Sex: Female

DRUGS (4)
  1. YAZ [Suspect]
     Dosage: UNK
     Route: 048
     Dates: start: 200404, end: 200807
  2. YASMIN [Suspect]
     Dosage: UNK
     Route: 048
     Dates: start: 200404, end: 200807
  3. LAMICTAL [Concomitant]
  4. PROTONIX [Concomitant]

REACTIONS (9)
  - Cholelithiasis [None]
  - Cholecystitis acute [None]
  - Fear [None]
  - Injury [None]
  - Pain [None]
  - Emotional distress [None]
  - Anxiety [None]
  - Psychological trauma [None]
  - Anhedonia [None]
